FAERS Safety Report 4705916-4 (Version None)
Quarter: 2005Q2

REPORT INFORMATION
  Report Type: 
  Country: None (occurrence: None)
  Receive Date: 20050630
  Receipt Date: 20050622
  Transmission Date: 20051028
  Serious: Yes (Hospitalization)
  Sender: FDA-Public Use
  Company Number: 142462USA

PATIENT
  Age: 57 Year
  Sex: Female

DRUGS (3)
  1. CHLOROQUINE PHOSPHATE [Suspect]
     Indication: MALARIA PROPHYLAXIS
     Dosage: 250 MILLIGRAM 1XWK,
     Dates: start: 20050327, end: 20050501
  2. HEPATITIS A VACCINE [Suspect]
     Dates: start: 20050301
  3. HEPATITIS B VACCINE [Suspect]
     Dates: start: 20050301

REACTIONS (4)
  - ERYTHEMA [None]
  - PRURITUS [None]
  - RASH [None]
  - URTICARIA GENERALISED [None]
